FAERS Safety Report 6222845-8 (Version None)
Quarter: 2009Q2

REPORT INFORMATION
  Report Type: 
  Country: None (occurrence: None)
  Receive Date: 20090611
  Receipt Date: 20090602
  Transmission Date: 20091009
  Serious: Yes (Hospitalization)
  Sender: FDA-Public Use
  Company Number: B0576958A

PATIENT
  Sex: Female

DRUGS (8)
  1. AVANDAMET [Suspect]
     Route: 048
     Dates: start: 20090320, end: 20090420
  2. KERLONE [Concomitant]
  3. LASIX [Concomitant]
  4. BIPRETERAX [Concomitant]
  5. KARDEGIC [Concomitant]
  6. NOVONORM [Concomitant]
  7. LIPANTHYL [Concomitant]
  8. DEDROGYL [Concomitant]

REACTIONS (6)
  - CARDIAC FAILURE [None]
  - DYSPNOEA EXERTIONAL [None]
  - OEDEMA [None]
  - OEDEMA PERIPHERAL [None]
  - ORTHOPNOEA [None]
  - RENAL FAILURE ACUTE [None]
